FAERS Safety Report 5380426-2 (Version None)
Quarter: 2007Q3

REPORT INFORMATION
  Report Type: 
  Country: None (occurrence: None)
  Receive Date: 20070706
  Receipt Date: 20070529
  Transmission Date: 20080115
  Serious: No
  Sender: FDA-Public Use
  Company Number: A0653198A

PATIENT
  Age: 56 Year
  Sex: Female

DRUGS (6)
  1. TYKERB [Suspect]
     Indication: BREAST CANCER
     Dosage: 5TAB CYCLIC
     Route: 048
     Dates: start: 20070423
  2. THYROID TAB [Concomitant]
  3. VICODIN [Concomitant]
  4. CEPHALEXIN [Concomitant]
     Indication: EAR DISORDER
  5. ABRAXANE [Concomitant]
  6. GEMZAR [Concomitant]

REACTIONS (1)
  - DIARRHOEA [None]
